FAERS Safety Report 10592516 (Version 2)
Quarter: 2015Q1

REPORT INFORMATION
  Report Type: Spontaneous
  Country: US (occurrence: None)
  Receive Date: 20141117
  Receipt Date: 20150304
  Transmission Date: 20150720
  Serious: Yes (Other)
  Sender: FDA-Public Use
  Company Number: KAD201411-001456

PATIENT
  Age: 48 Year
  Sex: Female

DRUGS (13)
  1. BOCEPREVIR (BOCEPREVIR) [Suspect]
     Active Substance: BOCEPREVIR
     Indication: CHRONIC HEPATITIS C
  2. PEGYLATED INTERFERON NOS [Suspect]
     Active Substance: PEGINTERFERON ALFA-2A OR PEGINTERFERON ALFA-2B OR PEGINTERFERON BETA-1A OR PEGINTERFERON LAMBDA-1A
     Indication: CHRONIC HEPATITIS C
  3. ETRAVIRINE [Concomitant]
     Active Substance: ETRAVIRINE
  4. TENOFOVIR [Concomitant]
     Active Substance: TENOFOVIR
  5. SOFOSBUVIR (SOFOSBUVIR) [Suspect]
     Active Substance: SOFOSBUVIR
     Indication: CHRONIC HEPATITIS C
     Dosage: 400 MG/DAY
  6. CYCLOSPORINE. [Suspect]
     Active Substance: CYCLOSPORINE
     Indication: IMMUNOSUPPRESSION
  7. ABACAVIR [Concomitant]
     Active Substance: ABACAVIR
  8. RALTREGRAVIR [Concomitant]
  9. RIBAVIRIN (RIBAVIRIN) [Suspect]
     Active Substance: RIBAVIRIN
     Indication: CHRONIC HEPATITIS C
  10. SIMEPREVIR (SIMEPREVIR) [Suspect]
     Active Substance: SIMEPREVIR
     Indication: CHRONIC HEPATITIS C
     Dosage: 150 MG/DAY
  11. MYCOPHENOLATE MOFETIL (MYCOPHENOLATE MOFETIL) [Suspect]
     Active Substance: MYCOPHENOLATE MOFETIL
     Indication: IMMUNOSUPPRESSION
  12. LAMIVUDINE. [Concomitant]
     Active Substance: LAMIVUDINE
  13. EMTRICITABINE [Concomitant]
     Active Substance: EMTRICITABINE

REACTIONS (8)
  - Depressive symptom [None]
  - No therapeutic response [None]
  - Hepatic cirrhosis [None]
  - Ascites [None]
  - Renal impairment [None]
  - Anaemia [None]
  - Encephalopathy [None]
  - Hyperbilirubinaemia [None]
